FAERS Safety Report 8267767-6 (Version None)
Quarter: 2012Q2

REPORT INFORMATION
  Report Type: 
  Country: None (occurrence: None)
  Receive Date: 20120409
  Receipt Date: 20120329
  Transmission Date: 20120825
  Serious: Yes (Hospitalization)
  Sender: FDA-Public Use
  Company Number: US-BAYER-2012-031660

PATIENT
  Age: 19 Year
  Sex: Female
  Weight: 53.968 kg

DRUGS (3)
  1. MOTRIN [Concomitant]
  2. YASMIN [Suspect]
     Route: 048
  3. PERCOCET [Concomitant]

REACTIONS (2)
  - DEEP VEIN THROMBOSIS [None]
  - PULMONARY EMBOLISM [None]
